FAERS Safety Report 10183398 (Version 1)
Quarter: 2014Q2

REPORT INFORMATION
  Report Type: Spontaneous
  Country: US (occurrence: US)
  Receive Date: 20140520
  Receipt Date: 20140520
  Transmission Date: 20141212
  Serious: No
  Sender: FDA-Public Use
  Company Number: US-B.I. PHARMACEUTICALS,INC./RIDGEFIELD-2014-BI-20854BP

PATIENT
  Age: 75 Year
  Sex: Female

DRUGS (4)
  1. SPIRIVA [Suspect]
     Indication: EMPHYSEMA
     Dosage: 18 MCG
     Route: 055
  2. METOPROLOL [Concomitant]
     Route: 048
  3. DILTIAZEM [Concomitant]
     Route: 048
  4. XARELTO [Concomitant]
     Route: 048

REACTIONS (3)
  - Nasal congestion [Not Recovered/Not Resolved]
  - Product quality issue [Recovered/Resolved]
  - Product quality issue [Recovered/Resolved]
